FAERS Safety Report 19510995 (Version 1)
Quarter: 2021Q3

REPORT INFORMATION
  Report Type: Report from Study
  Country: US (occurrence: US)
  Receive Date: 20210709
  Receipt Date: 20210709
  Transmission Date: 20211014
  Serious: Yes (Hospitalization)
  Sender: FDA-Public Use
  Company Number: US-JNJFOC-20210713038

PATIENT
  Age: 53 Year
  Sex: Female

DRUGS (7)
  1. LEVOFLOXACIN. [Concomitant]
     Active Substance: LEVOFLOXACIN
  2. METRONIDAZOLE. [Concomitant]
     Active Substance: METRONIDAZOLE
  3. TYLENOL [Concomitant]
     Active Substance: ACETAMINOPHEN
  4. ACIDOPHILUS [Concomitant]
     Active Substance: LACTOBACILLUS ACIDOPHILUS
  5. STELARA [Suspect]
     Active Substance: USTEKINUMAB
  6. NYSTATIN. [Concomitant]
     Active Substance: NYSTATIN
  7. STELARA [Suspect]
     Active Substance: USTEKINUMAB
     Indication: FIBROMYALGIA
     Route: 058
     Dates: start: 20190709

REACTIONS (3)
  - Abdominal abscess [Unknown]
  - Off label use [Unknown]
  - Product use in unapproved indication [Unknown]

NARRATIVE: CASE EVENT DATE: 20190709
